FAERS Safety Report 16877004 (Version 1)
Quarter: 2019Q4

REPORT INFORMATION
  Report Type: Spontaneous
  Country: US (occurrence: US)
  Receive Date: 20191002
  Receipt Date: 20191002
  Transmission Date: 20200122
  Serious: No
  Sender: FDA-Public Use
  Company Number: US-IPSEN BIOPHARMACEUTICALS, INC.-2019-17759

PATIENT
  Age: 9 Year
  Sex: Female

DRUGS (1)
  1. DYSPORT [Suspect]
     Active Substance: ABOBOTULINUMTOXINA
     Indication: MUSCLE SPASTICITY
     Dosage: DOSE: NOT REPORTED (SITE: INJECTED IN BOTH LEGS IN CALF AREA)
     Route: 065
     Dates: start: 20190907, end: 20190907

REACTIONS (4)
  - Rash [Recovered/Resolved]
  - Skin lesion [Recovered/Resolved]
  - Constipation [Unknown]
  - Abdominal pain [Recovered/Resolved]

NARRATIVE: CASE EVENT DATE: 20190907
